FAERS Safety Report 22095309 (Version 1)
Quarter: 2023Q1

REPORT INFORMATION
  Report Type: Spontaneous
  Country: US (occurrence: US)
  Receive Date: 20230314
  Receipt Date: 20230314
  Transmission Date: 20230418
  Serious: Yes (Hospitalization)
  Sender: FDA-Public Use
  Company Number: US-HORIZON THERAPEUTICS-HZN-2023-001739

PATIENT

DRUGS (3)
  1. ACTIMMUNE [Suspect]
     Active Substance: INTERFERON GAMMA-1B
     Indication: Neutrophil function disorder
     Dosage: DOSAGE OF 2000000 UNIT/0.5 ML (PACKAGING SIZE: 1 ML) , SO THEREFORE INJECT 0.2 ML UNDER THE SKIN VIA
     Route: 058
     Dates: start: 20150613
  2. SPORANOX [Concomitant]
     Active Substance: ITRACONAZOLE
     Dosage: SOLUTION, 10 MG/ML
     Route: 065
  3. SULFAMETHOX [Concomitant]
     Dosage: POW
     Route: 065

REACTIONS (2)
  - Fungal infection [Unknown]
  - Abscess [Unknown]
